FAERS Safety Report 5214852-9 (Version None)
Quarter: 2006Q4

REPORT INFORMATION
  Report Type: 
  Country: None (occurrence: None)
  Receive Date: 20061107
  Receipt Date: 20060608
  Transmission Date: 20070319
  Serious: No
  Sender: FDA-Public Use
  Company Number: 200613957BWH

PATIENT
  Age: 65 Year
  Sex: Male

DRUGS (3)
  1. LEVITRA [Suspect]
     Indication: ERECTILE DYSFUNCTION
     Dosage: 10 MG, ONCE, ORAL; 20 MG, ONCE, ORAL
     Route: 048
     Dates: end: 20060101
  2. LEVITRA [Suspect]
     Indication: ERECTILE DYSFUNCTION
     Dosage: 10 MG, ONCE, ORAL; 20 MG, ONCE, ORAL
     Route: 048
     Dates: start: 20060605
  3. HYDROCODONE [Concomitant]

REACTIONS (1)
  - ERECTILE DYSFUNCTION [None]
